FAERS Safety Report 16539537 (Version 2)
Quarter: 2019Q3

REPORT INFORMATION
  Report Type: Spontaneous
  Country: JP (occurrence: JP)
  Receive Date: 20190708
  Receipt Date: 20190711
  Transmission Date: 20191004
  Serious: Yes (Other)
  Sender: FDA-Public Use
  Company Number: JP-SAKK-2019SA180908AA

PATIENT
  Age: 63 Year
  Sex: Female

DRUGS (5)
  1. LEVOFOLINATE CALCIUM [Concomitant]
     Active Substance: LEVOLEUCOVORIN CALCIUM
     Indication: PRODUCT USED FOR UNKNOWN INDICATION
     Dosage: DOSE/DAY: 230 MG
     Route: 065
     Dates: start: 20190514, end: 20190514
  2. IRINOTECAN [Concomitant]
     Active Substance: IRINOTECAN
     Indication: PRODUCT USED FOR UNKNOWN INDICATION
     Dosage: DOSE/DAY: 200 MG
     Route: 065
     Dates: start: 20190514, end: 20190514
  3. FLUOROURACIL. [Concomitant]
     Active Substance: FLUOROURACIL
     Indication: PRODUCT USED FOR UNKNOWN INDICATION
     Dosage: DOSE/DAY: 460 MG (BOLUS)
     Route: 040
     Dates: start: 20190514, end: 20190514
  4. ZALTRAP [Suspect]
     Active Substance: ZIV-AFLIBERCEPT
     Indication: PRODUCT USED FOR UNKNOWN INDICATION
     Dosage: DOSE/DAY: 150 MG
     Route: 041
     Dates: start: 20190514, end: 20190514
  5. FLUOROURACIL. [Concomitant]
     Active Substance: FLUOROURACIL
     Dosage: DOSE: 2700 MG (46 HOURS CONTINUOUSLY)
     Route: 041
     Dates: start: 20190514

REACTIONS (3)
  - Ulcer haemorrhage [Not Recovered/Not Resolved]
  - Haematoma infection [Not Recovered/Not Resolved]
  - Abscess limb [Not Recovered/Not Resolved]

NARRATIVE: CASE EVENT DATE: 201906
